FAERS Safety Report 8820098 (Version 1)
Quarter: 2012Q4

REPORT INFORMATION
  Report Type: 
  Country: FR (occurrence: FR)
  Receive Date: 20121001
  Receipt Date: 20121001
  Transmission Date: 20130627
  Serious: Yes (Hospitalization, Other)
  Sender: FDA-Public Use
  Company Number: FR-PFIZER INC-2012240379

PATIENT
  Age: 82 Year
  Sex: Male

DRUGS (14)
  1. TRIATEC [Suspect]
     Indication: HYPERTENSION
     Dosage: 7.5 mg, daily
     Route: 048
     Dates: end: 20120827
  2. TRIFLUCAN [Suspect]
     Indication: CANDIDIASIS
     Dosage: 600 mg, daily
     Route: 048
     Dates: start: 20120813, end: 20120827
  3. RIFADINE [Suspect]
     Indication: STAPHYLOCOCCAL INFECTION
     Dosage: 1200 mg, daily
     Route: 048
     Dates: start: 20120801, end: 20120827
  4. IMOVANE [Concomitant]
     Dosage: UNK
  5. COUMADINE [Concomitant]
     Dosage: UNK
  6. DIFFU K [Concomitant]
     Dosage: UNK
  7. CORDARONE [Concomitant]
     Dosage: UNK
  8. SPIRIVA [Concomitant]
     Dosage: UNK
  9. SYMBICORT [Concomitant]
     Dosage: UNK
  10. PERMIXON [Concomitant]
     Dosage: UNK
  11. XYZALL [Concomitant]
     Dosage: UNK
  12. CIFLOX [Concomitant]
     Dosage: UNK
     Dates: start: 20120728, end: 20120731
  13. AMIKLIN [Concomitant]
     Dosage: UNK
     Dates: start: 20120728, end: 20120731
  14. ZYVOXID [Concomitant]
     Dosage: UNK
     Dates: start: 20120801

REACTIONS (5)
  - Hepatocellular injury [Unknown]
  - Aortic valve disease [Unknown]
  - Staphylococcal infection [Unknown]
  - Candidiasis [Unknown]
  - Haemodynamic instability [Unknown]
